FAERS Safety Report 19496593 (Version 1)
Quarter: 2021Q3

REPORT INFORMATION
  Report Type: Spontaneous
  Country: US (occurrence: US)
  Receive Date: 20210701
  Receipt Date: 20210701
  Transmission Date: 20211014
  Serious: Yes (Hospitalization)
  Sender: FDA-Public Use
  Company Number: None

PATIENT
  Age: 25 Year
  Sex: Male

DRUGS (4)
  1. NOXAFIL [Concomitant]
     Active Substance: POSACONAZOLE
  2. TACROLIMUS CAP 0.5MG [Suspect]
     Active Substance: TACROLIMUS
     Route: 048
     Dates: start: 202106
  3. FLUCONAZOLE. [Concomitant]
     Active Substance: FLUCONAZOLE
  4. SMZ/TMP DS TAB [Concomitant]

REACTIONS (3)
  - Hepatic enzyme increased [None]
  - Renal impairment [None]
  - Drug level above therapeutic [None]

NARRATIVE: CASE EVENT DATE: 20210630
